FAERS Safety Report 13430334 (Version 1)
Quarter: 2017Q2

REPORT INFORMATION
  Report Type: Report from Study
  Country: GB (occurrence: GB)
  Receive Date: 20170412
  Receipt Date: 20170412
  Transmission Date: 20170912
  Serious: Yes (Hospitalization)
  Sender: FDA-Public Use
  Company Number: GB-JNJFOC-20160606657

PATIENT
  Age: 81 Year
  Sex: Female
  Weight: 87 kg

DRUGS (13)
  1. BUDESONIDE W/FORMOTEROL [Concomitant]
     Active Substance: BUDESONIDE\FORMOTEROL
     Dosage: 400MCG/12MCG; 1 PUFF
     Route: 055
  2. LIRAGLUTIDE [Concomitant]
     Active Substance: LIRAGLUTIDE
     Dosage: EVERY MORNING
     Route: 058
  3. METFORMIN [Concomitant]
     Route: 048
  4. TIOTROPIUM BROMIDE [Concomitant]
     Active Substance: TIOTROPIUM BROMIDE
     Dosage: 1 PUFF EVERY MORNING
     Route: 055
  5. GLYCERYL TRINITRATE [Concomitant]
     Dosage: 1-2 SPRAYS WHEN REQUIRED
     Route: 060
  6. ATORVASTATIN [Concomitant]
     Active Substance: ATORVASTATIN
     Dosage: AT BEDTIME
     Route: 048
  7. PLACEBO [Suspect]
     Route: 048
  8. PREDNISOLONE [Concomitant]
     Dosage: EVERY MORNING
     Route: 048
  9. BISOPROLOL [Concomitant]
     Active Substance: BISOPROLOL
     Dosage: EVERY MORNING
     Route: 048
  10. CALCIUM CARBONATE W/COLECALCIFEROL [Concomitant]
     Active Substance: CALCIUM CARBONATE\CHOLECALCIFEROL
     Dosage: COLECALCIFEROL 400 UNIT/ CALCIUM CARBONATE 1.5, 2 TABLETS EVERY MORNING.
     Route: 048
  11. SALBUTAMOL [Concomitant]
     Active Substance: ALBUTEROL
     Dosage: 1-2 PUFFS WHEN REQUIRED
     Route: 055
  12. ASPIRIN [Concomitant]
     Dosage: EVERY MORNING.
     Route: 048
  13. INSULIN HUMAN INJECTION, ISOPHANE [Concomitant]
     Active Substance: INSULIN HUMAN
     Dosage: EVERY EVENING
     Route: 058

REACTIONS (1)
  - Infective exacerbation of chronic obstructive airways disease [Recovered/Resolved]

NARRATIVE: CASE EVENT DATE: 20160510
